FAERS Safety Report 10502849 (Version 3)
Quarter: 2014Q4

REPORT INFORMATION
  Report Type: Spontaneous
  Country: GB (occurrence: None)
  Receive Date: 20141003
  Receipt Date: 20141028
  Transmission Date: 20150528
  Serious: Yes (Other)
  Sender: FDA-Public Use
  Company Number: KAD201409-001164

PATIENT
  Age: 41 Year
  Sex: Female
  Weight: 74 kg

DRUGS (3)
  1. VIRAFERONPEG [Suspect]
     Active Substance: PEGINTERFERON ALFA-2B
     Indication: HEPATITIS C VIRUS TEST POSITIVE
     Dosage: INJECTION, 180 MCG PER WEEK, SUBCUTANEOUS
     Route: 058
     Dates: start: 20140404
  2. RIBAVIRIN. [Suspect]
     Active Substance: RIBAVIRIN
     Indication: HEPATITIS C VIRUS TEST POSITIVE
     Dosage: TABLET , 3-200 MG TWICE DAILY; 1200 MG DAIL, ORAL
     Route: 048
     Dates: start: 20140404
  3. VICTRELIS [Suspect]
     Active Substance: BOCEPREVIR
     Indication: HEPATITIS C VIRUS TEST POSITIVE
     Dosage: CAPSULE, 4-200 MG THRICE DAILY; 2400 MG DAILY, ORAL
     Route: 048
     Dates: start: 20140404, end: 20140801

REACTIONS (8)
  - Dermatitis [None]
  - Skin fissures [None]
  - Dry eye [None]
  - Vasculitic rash [None]
  - Eyelid exfoliation [None]
  - Dry skin [None]
  - Swelling face [None]
  - Skin exfoliation [None]

NARRATIVE: CASE EVENT DATE: 20140730
